FAERS Safety Report 4274429-9 (Version None)
Quarter: 2004Q1

REPORT INFORMATION
  Report Type: 
  Country: None (occurrence: None)
  Receive Date: 20040120
  Receipt Date: 20021204
  Transmission Date: 20041129
  Serious: No
  Sender: FDA-Public Use
  Company Number: US-BRISTOL-MYERS SQUIBB COMPANY-12127726

PATIENT
  Age: 42 Year
  Sex: Male

DRUGS (4)
  1. IFOSFAMIDE [Suspect]
     Indication: TESTIS CANCER
     Dosage: IN 500 CC OF NSS OVER 4 HOURS
     Route: 042
  2. DECADRON [Concomitant]
  3. MESNA [Concomitant]
  4. KYTRIL [Concomitant]

REACTIONS (1)
  - DRUG INEFFECTIVE [None]
